FAERS Safety Report 25836713 (Version 1)
Quarter: 2025Q3

REPORT INFORMATION
  Report Type: Report from Study
  Country: US (occurrence: US)
  Receive Date: 20250923
  Receipt Date: 20250923
  Transmission Date: 20251020
  Serious: Yes (Hospitalization)
  Sender: SIGMA TAU
  Company Number: US-LEADIANT GMBH-2024LBI000328

PATIENT
  Age: 70 Year
  Sex: Female
  Weight: 67.1 kg

DRUGS (31)
  1. MATULANE [Suspect]
     Active Substance: PROCARBAZINE HYDROCHLORIDE
     Indication: Central nervous system lymphoma
     Route: 065
     Dates: start: 20240719, end: 20240721
  2. MATULANE [Suspect]
     Active Substance: PROCARBAZINE HYDROCHLORIDE
     Route: 048
     Dates: start: 20240821, end: 20240827
  3. MATULANE [Suspect]
     Active Substance: PROCARBAZINE HYDROCHLORIDE
     Route: 048
     Dates: start: 20240918, end: 20241002
  4. TIRABRUTINIB [Suspect]
     Active Substance: TIRABRUTINIB
     Indication: Central nervous system lymphoma
     Dates: start: 20240718, end: 20240721
  5. TIRABRUTINIB [Suspect]
     Active Substance: TIRABRUTINIB
     Dates: start: 20240802, end: 20240807
  6. TIRABRUTINIB [Suspect]
     Active Substance: TIRABRUTINIB
     Route: 048
     Dates: start: 20240820, end: 20240904
  7. TIRABRUTINIB [Suspect]
     Active Substance: TIRABRUTINIB
     Route: 048
     Dates: start: 20240917, end: 20241014
  8. RITUXIMAB [Suspect]
     Active Substance: RITUXIMAB
     Indication: Central nervous system lymphoma
     Route: 042
     Dates: start: 20240718
  9. RITUXIMAB [Suspect]
     Active Substance: RITUXIMAB
     Route: 042
     Dates: start: 20240730, end: 20240730
  10. RITUXIMAB [Suspect]
     Active Substance: RITUXIMAB
     Route: 042
     Dates: start: 20240820, end: 20240820
  11. RITUXIMAB [Suspect]
     Active Substance: RITUXIMAB
     Dates: start: 20240903, end: 20240903
  12. RITUXIMAB [Suspect]
     Active Substance: RITUXIMAB
     Route: 042
     Dates: start: 20240917, end: 20240917
  13. RITUXIMAB [Suspect]
     Active Substance: RITUXIMAB
     Route: 042
     Dates: start: 20241001, end: 20241001
  14. METHOTREXATE [Suspect]
     Active Substance: METHOTREXATE
     Indication: Central nervous system lymphoma
     Route: 042
     Dates: start: 20240719
  15. METHOTREXATE [Suspect]
     Active Substance: METHOTREXATE
     Route: 042
     Dates: start: 20240731, end: 20240731
  16. METHOTREXATE [Suspect]
     Active Substance: METHOTREXATE
     Route: 042
     Dates: start: 20240821, end: 20240821
  17. METHOTREXATE [Suspect]
     Active Substance: METHOTREXATE
     Route: 042
     Dates: start: 20240918, end: 20240918
  18. METHOTREXATE [Suspect]
     Active Substance: METHOTREXATE
     Route: 042
     Dates: start: 20241002, end: 20241002
  19. VINCRISTINE SULFATE [Suspect]
     Active Substance: VINCRISTINE SULFATE
     Indication: Central nervous system lymphoma
     Route: 065
     Dates: start: 20240719
  20. VINCRISTINE SULFATE [Suspect]
     Active Substance: VINCRISTINE SULFATE
     Route: 042
     Dates: start: 20240731
  21. VINCRISTINE SULFATE [Suspect]
     Active Substance: VINCRISTINE SULFATE
     Route: 042
     Dates: start: 20240821, end: 20240821
  22. VINCRISTINE SULFATE [Suspect]
     Active Substance: VINCRISTINE SULFATE
     Route: 042
     Dates: start: 20240904, end: 20240904
  23. DEXAMETHASONE [Concomitant]
     Active Substance: DEXAMETHASONE
     Indication: Product used for unknown indication
     Dates: start: 20240629
  24. KEPPRA [Concomitant]
     Active Substance: LEVETIRACETAM
     Indication: Product used for unknown indication
     Dates: start: 20240629
  25. SYNTHROID [Concomitant]
     Active Substance: LEVOTHYROXINE SODIUM
     Indication: Product used for unknown indication
     Dates: start: 20240625
  26. BACTRIM [Concomitant]
     Active Substance: SULFAMETHOXAZOLE\TRIMETHOPRIM
     Indication: Product used for unknown indication
     Dates: start: 20240712
  27. SIMETHICONE (DIMETHICONE) [Concomitant]
     Active Substance: DIMETHICONE
     Indication: Product used for unknown indication
     Dates: start: 20240804
  28. AVAPRO [Concomitant]
     Active Substance: IRBESARTAN
     Indication: Product used for unknown indication
     Dates: start: 2019
  29. CRESTOR [Concomitant]
     Active Substance: ROSUVASTATIN CALCIUM
     Indication: Product used for unknown indication
     Dates: start: 2018
  30. SENNA LEAF [Concomitant]
     Active Substance: SENNA LEAF
     Indication: Product used for unknown indication
  31. XANAX [Concomitant]
     Active Substance: ALPRAZOLAM
     Indication: Product used for unknown indication
     Dates: start: 20240702

REACTIONS (1)
  - Enterocolitis infectious [Recovered/Resolved]

NARRATIVE: CASE EVENT DATE: 20240807
